FAERS Safety Report 6218974-5 (Version None)
Quarter: 2009Q2

REPORT INFORMATION
  Report Type: 
  Country: None (occurrence: None)
  Receive Date: 20090608
  Receipt Date: 20090528
  Transmission Date: 20091009
  Serious: Yes (Hospitalization, Other)
  Sender: FDA-Public Use
  Company Number: PHHY2009JP13646

PATIENT
  Sex: Female
  Weight: 52 kg

DRUGS (6)
  1. DIOVAN T30230+TAB+HY [Suspect]
     Dosage: 20 MG, BID
     Route: 048
     Dates: start: 20071218
  2. ARTIST [Concomitant]
     Dosage: 5 MG
     Route: 048
     Dates: start: 20071018
  3. FLUITRAN [Concomitant]
     Dosage: 1 MG
     Route: 048
     Dates: start: 20071018
  4. ALDACTONE [Concomitant]
     Dosage: 25 MG
     Route: 048
     Dates: start: 20071018, end: 20080730
  5. TAKEPRON [Concomitant]
     Dosage: 15 MG
     Route: 048
     Dates: start: 20071018
  6. VOGLIBOSE [Concomitant]
     Dosage: 0.9 MG
     Route: 048
     Dates: start: 20071018

REACTIONS (6)
  - BLOOD CREATININE INCREASED [None]
  - BLOOD GLUCOSE INCREASED [None]
  - BLOOD UREA INCREASED [None]
  - BLOOD URIC ACID INCREASED [None]
  - CARDIAC PACEMAKER INSERTION [None]
  - SICK SINUS SYNDROME [None]
